FAERS Safety Report 13251389 (Version 1)
Quarter: 2017Q1

REPORT INFORMATION
  Report Type: Spontaneous
  Country: US (occurrence: US)
  Receive Date: 20170220
  Receipt Date: 20170220
  Transmission Date: 20170428
  Serious: Yes (Hospitalization)
  Sender: FDA-Public Use
  Company Number: US-WEST-WARD PHARMACEUTICALS CORP.-US-H14001-17-00451

PATIENT
  Age: 13 Year
  Sex: Female

DRUGS (4)
  1. PREDNISONE. [Concomitant]
     Active Substance: PREDNISONE
     Indication: PRODUCT USED FOR UNKNOWN INDICATION
     Route: 065
  2. FUROSEMIDE. [Suspect]
     Active Substance: FUROSEMIDE
     Indication: HYPERCALCAEMIA
     Route: 065
  3. FLUID [Suspect]
     Active Substance: UNSPECIFIED INGREDIENT
     Indication: HYPERCALCAEMIA
     Dosage: 1500 ML/M2/DAY
     Route: 042
  4. FLUID [Suspect]
     Active Substance: UNSPECIFIED INGREDIENT
     Route: 042

REACTIONS (6)
  - Renal impairment [Recovering/Resolving]
  - Hypernatraemia [Recovering/Resolving]
  - Hypercalcaemia [Recovered/Resolved]
  - Blood urea increased [Recovering/Resolving]
  - Hypovolaemia [Recovered/Resolved]
  - Dehydration [Recovering/Resolving]
